FAERS Safety Report 4356651-6 (Version None)
Quarter: 2004Q2

REPORT INFORMATION
  Report Type: 
  Country: None (occurrence: None)
  Receive Date: 20040507
  Receipt Date: 20040415
  Transmission Date: 20050107
  Serious: Yes (Other)
  Sender: FDA-Public Use
  Company Number: FR_040403936

PATIENT
  Age: 33 Year
  Sex: Female

DRUGS (4)
  1. FORSTO (TERIPARATIDE) [Suspect]
     Indication: OSTEOPOROSIS
     Dosage: 20 UG/1 DAY
     Dates: start: 20040201, end: 20040415
  2. CALCIUM [Concomitant]
  3. VITAMIN D [Concomitant]
  4. ACETAMINOPHEN [Concomitant]

REACTIONS (4)
  - BACK PAIN [None]
  - CHEST DISCOMFORT [None]
  - DYSPNOEA [None]
  - HYPERSENSITIVITY [None]
